FAERS Safety Report 13412194 (Version 3)
Quarter: 2022Q4

REPORT INFORMATION
  Report Type: Spontaneous
  Country: US (occurrence: US)
  Receive Date: 20170406
  Receipt Date: 20221222
  Transmission Date: 20230113
  Serious: No
  Sender: FDA-Public Use
  Company Number: US-JNJFOC-20161009028

PATIENT
  Sex: Male

DRUGS (12)
  1. RISPERDAL [Suspect]
     Active Substance: RISPERIDONE
     Indication: Psychotic disorder
     Route: 048
     Dates: start: 20001004
  2. RISPERDAL [Suspect]
     Active Substance: RISPERIDONE
     Indication: Anger
     Dosage: INCREASED DOSE TO 0.5 MG AT MORNING AND 1 MG AT BED TIME
     Route: 048
     Dates: start: 20001005, end: 20001009
  3. RISPERDAL [Suspect]
     Active Substance: RISPERIDONE
     Indication: Depression
     Dosage: 0.5 MG, 1 AT MORNING, 2 AT BED TIME
     Route: 048
     Dates: start: 20010402
  4. RISPERDAL [Suspect]
     Active Substance: RISPERIDONE
     Route: 048
     Dates: start: 20011130, end: 20040518
  5. RISPERDAL [Suspect]
     Active Substance: RISPERIDONE
     Route: 048
     Dates: start: 20041122, end: 20060714
  6. RISPERDAL [Suspect]
     Active Substance: RISPERIDONE
     Route: 048
     Dates: start: 20061021, end: 20070524
  7. RISPERDAL [Suspect]
     Active Substance: RISPERIDONE
     Route: 048
     Dates: start: 20080319, end: 20080730
  8. RISPERDAL [Suspect]
     Active Substance: RISPERIDONE
     Route: 048
     Dates: start: 20081124
  9. RISPERDAL [Suspect]
     Active Substance: RISPERIDONE
     Indication: Psychotic disorder
     Dosage: 0.5 MG AT MORNING AND 1 MG AT BED TIME
     Route: 048
     Dates: start: 20001009
  10. RISPERDAL [Suspect]
     Active Substance: RISPERIDONE
     Indication: Anger
  11. RISPERDAL [Suspect]
     Active Substance: RISPERIDONE
     Indication: Depression
  12. RISPERDAL [Suspect]
     Active Substance: RISPERIDONE
     Indication: Hallucination, auditory

REACTIONS (2)
  - Gynaecomastia [Unknown]
  - Emotional distress [Unknown]
